FAERS Safety Report 16804618 (Version 3)
Quarter: 2020Q4

REPORT INFORMATION
  Report Type: Report from Study
  Country: US (occurrence: US)
  Receive Date: 20190913
  Receipt Date: 20201109
  Transmission Date: 20210113
  Serious: Yes (Hospitalization, Other)
  Sender: FDA-Public Use
  Company Number: US-ROCHE-2286557

PATIENT
  Age: 44 Year
  Sex: Female
  Weight: 117.3 kg

DRUGS (6)
  1. ATEZOLIZUMAB. [Suspect]
     Active Substance: ATEZOLIZUMAB
     Dosage: MAINTENANCE DOSE OVER 60 MINUTES ON DAY 1
     Route: 042
  2. RITUXIMAB. [Suspect]
     Active Substance: RITUXIMAB
     Dosage: MAINTENANCE DOSE ON DAY 1
     Route: 042
  3. ATEZOLIZUMAB. [Suspect]
     Active Substance: ATEZOLIZUMAB
     Indication: DIFFUSE LARGE B-CELL LYMPHOMA
     Dosage: LOADING DOSE?MOST RECENT DOSE ADMINISTERED ON 07/MAR/2019-1680 MG
     Route: 042
     Dates: start: 20190221
  4. RITUXIMAB. [Suspect]
     Active Substance: RITUXIMAB
     Indication: DIFFUSE LARGE B-CELL LYMPHOMA
     Dosage: LOADING DOSE?MOST RECENT DOSE ADMINISTERED ON 07/MAR/2019-1800 MG
     Route: 042
     Dates: start: 20190207
  5. GEMCITABINE HYDROCHLORIDE. [Suspect]
     Active Substance: GEMCITABINE HYDROCHLORIDE
     Indication: DIFFUSE LARGE B-CELL LYMPHOMA
     Dosage: MOST RECENT DOSE ADMINISTERED ON 07/MAR/2019-4600 MG
     Route: 042
     Dates: start: 20190207
  6. OXALIPLATIN. [Suspect]
     Active Substance: OXALIPLATIN
     Indication: DIFFUSE LARGE B-CELL LYMPHOMA
     Dosage: MOST RECENT DOSE ADMINISTERED ON 07/MAR/2019-400 MG
     Route: 042
     Dates: start: 20190207

REACTIONS (3)
  - Febrile neutropenia [Recovered/Resolved]
  - Syncope [Unknown]
  - Embolism [Unknown]

NARRATIVE: CASE EVENT DATE: 20190312
